FAERS Safety Report 24689635 (Version 2)
Quarter: 2025Q2

REPORT INFORMATION
  Report Type: Report from Study
  Country: US (occurrence: US)
  Receive Date: 20241203
  Receipt Date: 20250610
  Transmission Date: 20250717
  Serious: Yes (Other)
  Sender: UCB
  Company Number: US-UCBSA-2024062049

PATIENT
  Age: 8 Year
  Sex: Male
  Weight: 23.73 kg

DRUGS (2)
  1. FINTEPLA [Suspect]
     Active Substance: FENFLURAMINE
     Indication: Product used for unknown indication
     Dates: start: 20200801
  2. FINTEPLA [Suspect]
     Active Substance: FENFLURAMINE

REACTIONS (2)
  - Non-compaction cardiomyopathy [Unknown]
  - Electrocardiogram ST-T change [Unknown]

NARRATIVE: CASE EVENT DATE: 20240807
